FAERS Safety Report 13068634 (Version 2)
Quarter: 2017Q2

REPORT INFORMATION
  Report Type: Report from Study
  Country: BR (occurrence: BR)
  Receive Date: 20161228
  Receipt Date: 20170630
  Transmission Date: 20170830
  Serious: Yes (Hospitalization)
  Sender: FDA-Public Use
  Company Number: BR-BIOGEN-2016BI00335141

PATIENT
  Age: 36 Year
  Sex: Female
  Weight: 58 kg

DRUGS (2)
  1. AVONEX [Suspect]
     Active Substance: INTERFERON BETA-1A
     Route: 030
     Dates: start: 20160405, end: 20170401
  2. AVONEX [Suspect]
     Active Substance: INTERFERON BETA-1A
     Indication: MULTIPLE SCLEROSIS
     Route: 030
     Dates: start: 201602

REACTIONS (5)
  - Asthenia [Unknown]
  - Multiple sclerosis relapse [Recovered/Resolved]
  - Visual impairment [Unknown]
  - Muscular weakness [Unknown]
  - Depression [Unknown]

NARRATIVE: CASE EVENT DATE: 201606
